FAERS Safety Report 12799352 (Version 4)
Quarter: 2017Q2

REPORT INFORMATION
  Report Type: Spontaneous
  Country: IT (occurrence: IT)
  Receive Date: 20160930
  Receipt Date: 20170630
  Transmission Date: 20170830
  Serious: Yes (Hospitalization, Other)
  Sender: FDA-Public Use
  Company Number: IT-PFIZER INC-2016455532

PATIENT
  Age: 29 Year
  Sex: Male
  Weight: 67 kg

DRUGS (2)
  1. GAMMA-HYDROXYBUTYRATE [Suspect]
     Active Substance: 4-HYDROXYBUTANOIC ACID
     Indication: SUBSTANCE USE
     Dosage: UNK (TWO DOSES GHB IN POWDER, DISSOLVED THE TWO DOSES INTO TWO ALCOHOLIC, DRINKS (20% ALCOHOL VOLU )
  2. SILDENAFIL CITRATE. [Suspect]
     Active Substance: SILDENAFIL CITRATE
     Indication: SUBSTANCE USE
     Dosage: UNK

REACTIONS (7)
  - Intentional product misuse [Recovered/Resolved]
  - Dizziness [Recovered/Resolved]
  - Chest pain [Recovered/Resolved]
  - Headache [Recovered/Resolved]
  - Tachycardia [Recovered/Resolved]
  - Toxicity to various agents [Recovered/Resolved]
  - Dyspnoea [Recovered/Resolved]
